FAERS Safety Report 4819597-2 (Version None)
Quarter: 2005Q4

REPORT INFORMATION
  Report Type: 
  Country: None (occurrence: None)
  Receive Date: 20051103
  Receipt Date: 20051019
  Transmission Date: 20060501
  Serious: Yes (Other)
  Sender: FDA-Public Use
  Company Number: ESWYE077221OCT05

PATIENT
  Age: 8 Year
  Sex: Female
  Weight: 30.2 kg

DRUGS (4)
  1. ENBREL [Suspect]
     Indication: JUVENILE ARTHRITIS
     Route: 058
     Dates: start: 20040201
  2. DEFLAZACORT [Concomitant]
     Indication: JUVENILE ARTHRITIS
     Dosage: 6.0 MG
     Route: 048
  3. INDOMETHACIN [Concomitant]
     Indication: JUVENILE ARTHRITIS
     Dosage: 32.5 MG
     Route: 048
  4. METHOTREXATE [Concomitant]

REACTIONS (1)
  - BENIGN INTRACRANIAL HYPERTENSION [None]
